FAERS Safety Report 20545959 (Version 1)
Quarter: 2022Q1

REPORT INFORMATION
  Report Type: Spontaneous
  Country: US (occurrence: None)
  Receive Date: 20220303
  Receipt Date: 20220303
  Transmission Date: 20220423
  Serious: Yes (Hospitalization)
  Sender: FDA-Public Use
  Company Number: None

PATIENT
  Sex: Male
  Weight: 3.83 kg

DRUGS (1)
  1. CISPLATIN [Suspect]
     Active Substance: CISPLATIN
     Indication: Product used for unknown indication
     Dates: end: 20220223

REACTIONS (4)
  - Acute kidney injury [None]
  - Hyperkalaemia [None]
  - Iatrogenic injury [None]
  - Hyponatraemia [None]

NARRATIVE: CASE EVENT DATE: 20220227
